FAERS Safety Report 8840068 (Version 2)
Quarter: 2012Q4

REPORT INFORMATION
  Report Type: Spontaneous
  Country: US (occurrence: None)
  Receive Date: 20121011
  Receipt Date: 20121018
  Transmission Date: 20130627
  Serious: Yes (Other)
  Sender: FDA-Public Use
  Company Number: 1209-522

PATIENT

DRUGS (1)
  1. EYLEA [Suspect]

REACTIONS (4)
  - Eye haemorrhage [None]
  - Vitreal cells [None]
  - Eye inflammation [None]
  - Visual acuity reduced [None]
